FAERS Safety Report 4961777-X (Version None)
Quarter: 2006Q1

REPORT INFORMATION
  Report Type: 
  Country: None (occurrence: None)
  Receive Date: 20060329
  Receipt Date: 20060316
  Transmission Date: 20060701
  Serious: Yes (Death)
  Sender: FDA-Public Use
  Company Number: 2006JP000682

PATIENT
  Age: 39 Year
  Sex: Male

DRUGS (2)
  1. PROGRAF [Suspect]
     Dosage: UNK, UNKNOWN
     Route: 065
  2. METHOTREXATE [Concomitant]

REACTIONS (1)
  - HEPATITIS FULMINANT [None]
